FAERS Safety Report 4360407-8 (Version None)
Quarter: 2004Q2

REPORT INFORMATION
  Report Type: 
  Country: None (occurrence: None)
  Receive Date: 20040514
  Receipt Date: 20040429
  Transmission Date: 20050107
  Serious: Yes (Disabling, Other)
  Sender: FDA-Public Use
  Company Number: 2004-DE-02393GD

PATIENT
  Age: 47 Year
  Sex: Male

DRUGS (14)
  1. NEVIRAPINE (NEVIRAPINE) (NR) [Suspect]
     Indication: HIV INFECTION
     Dosage: SEE IMAGE
     Dates: start: 19990701, end: 19970501
  2. LAMIVUDINE (LAMIVUDINE) [Suspect]
     Indication: HIV INFECTION
     Dates: start: 19970501
  3. ZIDOVUDINE [Suspect]
     Indication: HIV INFECTION
     Dates: start: 19990701
  4. ABACAVIR (ABACAVIR) [Suspect]
     Indication: HIV INFECTION
     Dates: start: 19990701
  5. ADEFOVIR (ADEFOVIR) [Suspect]
     Indication: HIV INFECTION
     Dates: start: 19990701, end: 20000501
  6. HYDROXYUREA [Suspect]
     Indication: HIV INFECTION
     Dates: start: 19990701, end: 20000501
  7. ZALCITABINE (ZALCITABINE) [Suspect]
     Indication: HIV INFECTION
     Dates: start: 19940101, end: 19960101
  8. STAVUDINE (STAVUDINE) [Suspect]
     Indication: HIV INFECTION
     Dates: start: 19970501, end: 19990701
  9. INDINAVIR (INDINAVIR) [Suspect]
     Indication: HIV INFECTION
     Dates: start: 19970501, end: 19990701
  10. RITONAVIR (RITONAVIR) [Suspect]
     Indication: HIV INFECTION
     Dosage: 200 MG (BD)
  11. SAQUINAVIR [Suspect]
     Indication: HIV INFECTION
     Dosage: 10 MG, BID
  12. SUSTANON (SUSTANON) [Concomitant]
  13. CREATINE (CREATINE) [Concomitant]
  14. TRIBULUS (HERBAL PREPARATION) [Concomitant]

REACTIONS (9)
  - ACQUIRED IMMUNODEFICIENCY SYNDROME [None]
  - CONDITION AGGRAVATED [None]
  - DEPRESSION [None]
  - HEREDITARY OPTIC ATROPHY [None]
  - IMMUNE SYSTEM DISORDER [None]
  - MITOCHONDRIAL TOXICITY [None]
  - NEUROPATHY PERIPHERAL [None]
  - PNEUMOCYSTIS CARINII PNEUMONIA [None]
  - REFUSAL OF TREATMENT BY PATIENT [None]
